FAERS Safety Report 4958089-7 (Version None)
Quarter: 2006Q1

REPORT INFORMATION
  Report Type: 
  Country: None (occurrence: None)
  Receive Date: 20060324
  Receipt Date: 20060314
  Transmission Date: 20060701
  Serious: Yes (Death, Life-Threatening, Other)
  Sender: FDA-Public Use
  Company Number: US016809

PATIENT
  Age: 41 Year
  Sex: Female

DRUGS (6)
  1. ARSENIC TRIOXIDE [Suspect]
     Indication: ACUTE PROMYELOCYTIC LEUKAEMIA
     Dosage: 8.07 MG QD INTRAVENOUS DRIP
     Route: 041
     Dates: start: 20060112, end: 20060125
  2. CYTARABINE [Concomitant]
  3. ENALAPRIL MALEATE [Concomitant]
  4. CEFEPIME HYDROCHLORIDE [Concomitant]
  5. AMIKACIN SULFATE [Concomitant]
  6. IMIPENEM CILASTATIN [Concomitant]

REACTIONS (4)
  - CONCOMITANT DISEASE AGGRAVATED [None]
  - DISSEMINATED INTRAVASCULAR COAGULATION [None]
  - DRUG INEFFECTIVE [None]
  - INFECTION [None]
